FAERS Safety Report 5929645-4 (Version None)
Quarter: 2008Q4

REPORT INFORMATION
  Report Type: 
  Country: None (occurrence: None)
  Receive Date: 20081024
  Receipt Date: 20081013
  Transmission Date: 20090506
  Serious: Yes (Hospitalization)
  Sender: FDA-Public Use
  Company Number: US-WYE-H01814307

PATIENT
  Age: 20 Year
  Sex: Male

DRUGS (4)
  1. CHLORPHENIRAMINE MALEATE/DEXTROMETHORPHAN HYDROBROMIDE [Suspect]
     Dosage: UNKNOWN
     Route: 065
  2. BENZTROPINE MESYLATE [Suspect]
     Dosage: UNKNOWN
     Route: 065
  3. ESCITALOPRAM [Suspect]
     Dosage: UNKNOWN
     Route: 065
  4. ARIPIPRAZOLE [Suspect]
     Dosage: UNKNOWN
     Route: 065

REACTIONS (5)
  - DYSARTHRIA [None]
  - LETHARGY [None]
  - MYDRIASIS [None]
  - OVERDOSE [None]
  - SEROTONIN SYNDROME [None]
